FAERS Safety Report 25140652 (Version 1)
Quarter: 2025Q1

REPORT INFORMATION
  Report Type: Report from Study
  Country: CA (occurrence: CA)
  Receive Date: 20250331
  Receipt Date: 20250331
  Transmission Date: 20250409
  Serious: Yes (Death)
  Sender: CSL BEHRING
  Company Number: CA-BEH-2025200529

PATIENT
  Age: 49 Year
  Sex: Female
  Weight: 72.8 kg

DRUGS (7)
  1. HIZENTRA [Suspect]
     Active Substance: HUMAN IMMUNOGLOBULIN G
     Indication: Secondary immunodeficiency
     Dosage: (PRODUCT STRENGTH 8G) WEEKLY
     Route: 058
     Dates: start: 20240227
  2. ASPIRIN [Concomitant]
     Active Substance: ASPIRIN
  3. Aspira [Concomitant]
  4. AMLODIPINE [Concomitant]
     Active Substance: AMLODIPINE BESYLATE
  5. ACYCLOVIR [Concomitant]
     Active Substance: ACYCLOVIR
  6. RABEPRAZOLE [Concomitant]
     Active Substance: RABEPRAZOLE
  7. DEXAMETHASONE [Concomitant]
     Active Substance: DEXAMETHASONE

REACTIONS (1)
  - Death [Fatal]
